FAERS Safety Report 25661998 (Version 4)
Quarter: 2025Q3

REPORT INFORMATION
  Report Type: Spontaneous
  Country: US (occurrence: US)
  Receive Date: 20250809
  Receipt Date: 20250909
  Transmission Date: 20251021
  Serious: Yes (Other)
  Sender: IPSEN BIOPHARMACEUTICALS, INC.
  Company Number: US-IPSEN Group, Research and Development-2025-18915

PATIENT
  Sex: Female

DRUGS (2)
  1. LANREOTIDE ACETATE [Suspect]
     Active Substance: LANREOTIDE ACETATE
     Indication: Carcinoid tumour
     Dosage: DEEP SUBCUTANEOUS
     Route: 058
     Dates: start: 202209
  2. LANREOTIDE ACETATE [Suspect]
     Active Substance: LANREOTIDE ACETATE
     Indication: Neuroendocrine tumour
     Dosage: DEEP SUBCUTANEOUS
     Route: 058
     Dates: start: 202307

REACTIONS (4)
  - Pyelocaliectasis [Unknown]
  - Nephrolithiasis [Unknown]
  - Hepatic steatosis [Unknown]
  - Umbilical hernia [Unknown]
